FAERS Safety Report 7434705-5 (Version None)
Quarter: 2011Q2

REPORT INFORMATION
  Report Type: 
  Country: None (occurrence: None)
  Receive Date: 20110415
  Receipt Date: 20110404
  Transmission Date: 20111010
  Serious: Yes (Hospitalization)
  Sender: FDA-Public Use
  Company Number: 2011SP015503

PATIENT
  Age: 51 Year
  Sex: Male

DRUGS (1)
  1. DESLORATADINE [Suspect]
     Indication: PRURITUS
     Dosage: 1 DF;QD
     Dates: start: 20110202

REACTIONS (2)
  - HEPATITIS B [None]
  - HEPATITIS CHOLESTATIC [None]
